FAERS Safety Report 8913042 (Version 1)
Quarter: 2012Q4

REPORT INFORMATION
  Report Type: Spontaneous
  Country: US (occurrence: None)
  Receive Date: 20121113
  Receipt Date: 20121113
  Transmission Date: 20130627
  Serious: Yes (Hospitalization)
  Sender: FDA-Public Use
  Company Number: US-010012

PATIENT
  Sex: Female

DRUGS (2)
  1. TRANEXAMIC ACID [Suspect]
     Indication: PRODUCT USED FOR UNKNOWN INDICATION
     Dosage: (single dose of unknown total quantity)
     Dates: start: 20121007
  2. IRON [Suspect]
     Indication: PRODUCT USED FOR UNKNOWN INDICATION

REACTIONS (2)
  - Thrombosis [None]
  - Infusion site thrombosis [None]
